FAERS Safety Report 9888512 (Version 3)
Quarter: 2018Q4

REPORT INFORMATION
  Report Type: Spontaneous
  Country: US (occurrence: US)
  Receive Date: 20140211
  Receipt Date: 20181112
  Transmission Date: 20190205
  Serious: Yes (Other)
  Sender: FDA-Public Use
  Company Number: US-BAYER-2014-018980

PATIENT
  Age: 27 Year
  Sex: Female

DRUGS (2)
  1. MIRENA [Suspect]
     Active Substance: LEVONORGESTREL
     Indication: CONTRACEPTION
     Dosage: 20 MCG/24HR, CONT
     Route: 015
     Dates: start: 2012
  2. MIRENA [Suspect]
     Active Substance: LEVONORGESTREL
     Indication: CONTRACEPTION
     Dosage: 20 MCG/24HR, CONT
     Route: 015
     Dates: start: 201207, end: 2012

REACTIONS (11)
  - Embedded device [Not Recovered/Not Resolved]
  - Device expulsion [None]
  - Abdominal pain lower [Not Recovered/Not Resolved]
  - Device use issue [None]
  - Procedural haemorrhage [None]
  - Device use issue [None]
  - Device breakage [Not Recovered/Not Resolved]
  - Procedural anxiety [None]
  - Post procedural discomfort [None]
  - Menorrhagia [None]
  - Complication of device removal [Not Recovered/Not Resolved]

NARRATIVE: CASE EVENT DATE: 2012
